FAERS Safety Report 10625187 (Version 1)
Quarter: 2014Q4

REPORT INFORMATION
  Report Type: Spontaneous
  Country: FR (occurrence: None)
  Receive Date: 20141201
  Receipt Date: 20141201
  Transmission Date: 20150529
  Serious: Yes (Death, Hospitalization)
  Sender: FDA-Public Use
  Company Number: 14X-056-1179872-00

PATIENT
  Age: 70 Year
  Sex: Male

DRUGS (19)
  1. LEVETIRACTAM [Suspect]
     Active Substance: LEVETIRACETAM
     Indication: PRODUCT USED FOR UNKNOWN INDICATION
     Dates: start: 201410
  2. TRIFLUCAN (FLUCONAZOLE) (FLUCONAZOLE) [Concomitant]
     Active Substance: FLUCONAZOLE
  3. FUNGIZONE (AMPHOTERICIN B) (AMPHOTERICIN B) [Concomitant]
  4. AZOPT (BIMATOPROST) (BIMATOPROST) [Concomitant]
  5. DEPAKINE CHRONO [Suspect]
     Active Substance: VALPROATE SODIUM
     Indication: PRODUCT USED FOR UNKNOWN INDICATION
     Route: 048
  6. FORLAX (MACROGOL) (MACROGOL) [Concomitant]
  7. INEXIUM (ESOMEPRAZOLE MAGNESIUM) (ESOMEPRAZOLE MAGNESIUM) [Concomitant]
     Active Substance: ESOMEPRAZOLE MAGNESIUM
  8. LUMIGAN (BIMATOPROST) (BIMATOPROST) [Concomitant]
  9. DOLIPRANE (PARACETAMOL) (PARACETAMOL) [Concomitant]
  10. ZYLORIC (ALLOPURINOL) (ALLOPURINOL) [Concomitant]
  11. GENTAMICIN (GENTAMICIN SULFATE) (GENTAMICIN SULFATE) [Concomitant]
  12. TRIFLUCAN (FLUCONAZOLE) (FLUCONAZOLE) [Concomitant]
     Active Substance: FLUCONAZOLE
  13. ROCEPHINE (CEFTRIAXONE SODIUM) (CEFTRIAXONE SODIUM) [Concomitant]
     Active Substance: CEFTRIAXONE SODIUM
  14. ATENOLOL (ATENOLOL) (ATENOLOL) [Concomitant]
     Active Substance: ATENOLOL
  15. INVANZ [Suspect]
     Active Substance: ERTAPENEM SODIUM
     Indication: PRODUCT USED FOR UNKNOWN INDICATION
     Dates: start: 20140425, end: 20140505
  16. AMIKACIN (AMIKACIN) (AMIKACIN) [Concomitant]
     Active Substance: AMIKACIN
  17. LOVENOX (ENOXAPARIN SODIUM) (ENOXAPARIN SODIUM) [Concomitant]
  18. GLUCOPHAGE (METFORMIN HYDROCHLORIDE) (METFORMIN HYDROCHLORIDE) [Concomitant]
  19. AZOPT (BRINZOLAMIDE) (BRINZOLAMIDE) [Concomitant]

REACTIONS (11)
  - Disturbance in attention [None]
  - Status epilepticus [None]
  - Drug interaction [None]
  - Anticonvulsant drug level decreased [None]
  - Somnolence [None]
  - Enterobacter bacteraemia [None]
  - Aphasia [None]
  - Sepsis [None]
  - Loss of consciousness [None]
  - Confusional state [None]
  - Pneumonia aspiration [None]

NARRATIVE: CASE EVENT DATE: 2014
